FAERS Safety Report 5843889-1 (Version None)
Quarter: 2008Q3

REPORT INFORMATION
  Report Type: 
  Country: None (occurrence: None)
  Receive Date: 20080731
  Receipt Date: 20080428
  Transmission Date: 20090109
  Serious: No
  Sender: FDA-Public Use
  Company Number: US200804007149

PATIENT
  Age: 55 Year
  Sex: Female
  Weight: 94.8 kg

DRUGS (12)
  1. BYETTA [Suspect]
     Dosage: SEE IMAGE
     Route: 058
     Dates: start: 20080101, end: 20080201
  2. BYETTA [Suspect]
     Dosage: SEE IMAGE
     Route: 058
     Dates: start: 20080201, end: 20080201
  3. BYETTA [Suspect]
     Dosage: SEE IMAGE
     Route: 058
     Dates: start: 20080201, end: 20080301
  4. BYETTA [Suspect]
     Dosage: SEE IMAGE
     Route: 058
     Dates: start: 20080301, end: 20080301
  5. BYETTA [Suspect]
     Dosage: SEE IMAGE
     Route: 058
     Dates: start: 20080301, end: 20080424
  6. BYETTA [Suspect]
     Dosage: SEE IMAGE
     Route: 058
     Dates: start: 20080425
  7. AVANDIA [Concomitant]
  8. METFORMIN HCL [Concomitant]
  9. GLYBURIDE [Concomitant]
  10. LISINOPRIL /USA/ (LISINOPRIL) [Concomitant]
  11. LOVASTATIN [Concomitant]
  12. EXENATIDE PEN, DISPOSABLE DEVICE (EXENATIDE PEN)) PEN,DISPOSABLE [Concomitant]

REACTIONS (5)
  - DECREASED APPETITE [None]
  - DIZZINESS [None]
  - NAUSEA [None]
  - PERIPHERAL COLDNESS [None]
  - WEIGHT DECREASED [None]
